FAERS Safety Report 8278206-3 (Version None)
Quarter: 2012Q2

REPORT INFORMATION
  Report Type: 
  Country: None (occurrence: None)
  Receive Date: 20120412
  Receipt Date: 20110325
  Transmission Date: 20120825
  Serious: No
  Sender: FDA-Public Use
  Company Number: US-ASTRAZENECA-2011SE17845

PATIENT
  Age: 65 Year
  Sex: Female

DRUGS (2)
  1. MOBIC [Concomitant]
  2. NEXIUM [Suspect]
     Route: 048

REACTIONS (6)
  - INTERVERTEBRAL DISC PROTRUSION [None]
  - GASTRIC ULCER [None]
  - ABDOMINAL PAIN UPPER [None]
  - MUSCULOSKELETAL DISCOMFORT [None]
  - INTERVERTEBRAL DISC DISORDER [None]
  - NERVE COMPRESSION [None]
